FAERS Safety Report 7894307-3 (Version None)
Quarter: 2011Q4

REPORT INFORMATION
  Report Type: 
  Country: None (occurrence: None)
  Receive Date: 20111104
  Receipt Date: 20111028
  Transmission Date: 20120403
  Serious: Yes (Other)
  Sender: FDA-Public Use
  Company Number: US-B.I. PHARMACEUTICALS,INC./RIDGEFIELD-2011-BP-22005BP

PATIENT
  Sex: Male

DRUGS (5)
  1. TYLENOL-500 [Concomitant]
     Indication: ARTHRITIS
  2. BENICAR [Concomitant]
     Dosage: 40 MG
     Route: 048
  3. NEXIUM [Concomitant]
     Dosage: 40 MG
     Route: 048
  4. CYMBALTA [Concomitant]
     Indication: HYPOAESTHESIA
     Dosage: 20 MG
     Route: 048
  5. PRADAXA [Suspect]
     Indication: ATRIAL FIBRILLATION
     Dosage: 300 MG
     Route: 048
     Dates: start: 20110101

REACTIONS (4)
  - THROMBOTIC STROKE [None]
  - GAIT DISTURBANCE [None]
  - AMAUROSIS [None]
  - BRAIN STEM STROKE [None]
